FAERS Safety Report 6443823-X (Version None)
Quarter: 2009Q4

REPORT INFORMATION
  Report Type: 
  Country: None (occurrence: None)
  Receive Date: 20091117
  Receipt Date: 20081118
  Transmission Date: 20100525
  Serious: No
  Sender: FDA-Public Use
  Company Number: US-ASTRAZENECA-2009UW17195

PATIENT
  Age: 63 Year
  Sex: Female

DRUGS (2)
  1. PRILOSEC OTC [Suspect]
     Indication: GASTROOESOPHAGEAL REFLUX DISEASE
     Dosage: 1 TABLET, 1 /DAY FOR 396 DAYS
     Route: 048
     Dates: start: 20071018, end: 20081117
  2. ENDROL [Concomitant]
     Indication: TREMOR

REACTIONS (1)
  - DENTAL CARIES [None]
